FAERS Safety Report 18348239 (Version 1)
Quarter: 2020Q4

REPORT INFORMATION
  Report Type: Spontaneous
  Country: US (occurrence: US)
  Receive Date: 20201005
  Receipt Date: 20201005
  Transmission Date: 20210114
  Serious: No
  Sender: FDA-Public Use
  Company Number: None

PATIENT
  Age: 91 Year
  Sex: Female
  Weight: 63 kg

DRUGS (13)
  1. XPOVIO [Suspect]
     Active Substance: SELINEXOR
     Indication: LYMPHOMA
     Dosage: ?          OTHER FREQUENCY:TWICE WEEKLY;?
     Route: 048
     Dates: start: 20200722, end: 20200930
  2. ELIQUIS [Concomitant]
     Active Substance: APIXABAN
  3. AMOXICILLIN. [Concomitant]
     Active Substance: AMOXICILLIN
  4. CETIRIZINE [Concomitant]
     Active Substance: CETIRIZINE HYDROCHLORIDE
  5. CALCIUM CARBONATE. [Concomitant]
     Active Substance: CALCIUM CARBONATE
  6. FERROUS SULFATE. [Concomitant]
     Active Substance: FERROUS SULFATE
  7. POTASSIUM CHLORIDE ER [Concomitant]
     Active Substance: POTASSIUM CHLORIDE
  8. ONDANSETRON [Concomitant]
     Active Substance: ONDANSETRON
  9. ALLOPURINOL. [Concomitant]
     Active Substance: ALLOPURINOL
  10. TRAMADOL. [Concomitant]
     Active Substance: TRAMADOL
  11. HYDROCHLOROTHIAZIDE. [Concomitant]
     Active Substance: HYDROCHLOROTHIAZIDE
  12. ESCITALOPRAM [Concomitant]
     Active Substance: ESCITALOPRAM OXALATE
  13. ACETAMINOPHEN. [Concomitant]
     Active Substance: ACETAMINOPHEN

REACTIONS (1)
  - Disease progression [None]

NARRATIVE: CASE EVENT DATE: 20201001
